FAERS Safety Report 7507175-6 (Version None)
Quarter: 2011Q2

REPORT INFORMATION
  Report Type: 
  Country: None (occurrence: None)
  Receive Date: 20110526
  Receipt Date: 20110517
  Transmission Date: 20111010
  Serious: Yes (Hospitalization)
  Sender: FDA-Public Use
  Company Number: JP-BRISTOL-MYERS SQUIBB COMPANY-15772395

PATIENT
  Age: 80 Year
  Sex: Female

DRUGS (2)
  1. CPT-11 [Concomitant]
     Indication: COLON CANCER
     Route: 041
     Dates: start: 20110427
  2. ERBITUX [Suspect]
     Indication: COLON CANCER
     Dosage: 27APR11 TO 27APR11 = 600MG; 03MAY11 TO UNKWN = 375 MG
     Route: 041
     Dates: start: 20110427

REACTIONS (1)
  - SICK SINUS SYNDROME [None]
